FAERS Safety Report 4398922-3 (Version None)
Quarter: 2004Q3

REPORT INFORMATION
  Report Type: 
  Country: None (occurrence: None)
  Receive Date: 20040712
  Receipt Date: 20030618
  Transmission Date: 20050211
  Serious: Yes (Death)
  Sender: FDA-Public Use
  Company Number: WAES 0306USA01080

PATIENT
  Age: 55 Year
  Sex: Male

DRUGS (5)
  1. SINGULAIR [Suspect]
     Indication: ASTHMA
     Dosage: 10 MG/DAILY, PO
     Route: 048
     Dates: start: 20030122, end: 20030224
  2. FLUTICASONE PROPIONATE [Concomitant]
  3. SEREVENT [Concomitant]
  4. SOLU-MEDROL [Concomitant]
  5. THYRADIN-S [Concomitant]

REACTIONS (3)
  - PNEUMONIA [None]
  - PNEUMONIA STAPHYLOCOCCAL [None]
  - STAPHYLOCOCCAL INFECTION [None]
